FAERS Safety Report 12829499 (Version 1)
Quarter: 2016Q4

REPORT INFORMATION
  Report Type: Spontaneous
  Country: US (occurrence: US)
  Receive Date: 20161007
  Receipt Date: 20161007
  Transmission Date: 20170207
  Serious: No
  Sender: FDA-Public Use
  Company Number: US-SA-2016SA089507

PATIENT
  Age: 61 Year
  Sex: Female

DRUGS (30)
  1. AMANTADINE [Concomitant]
     Active Substance: AMANTADINE
  2. METFORMIN [Concomitant]
     Active Substance: METFORMIN HYDROCHLORIDE
  3. SIMVASTATIN. [Concomitant]
     Active Substance: SIMVASTATIN
  4. OMEPRAZOLE. [Concomitant]
     Active Substance: OMEPRAZOLE
  5. ALPRAZOLAM. [Concomitant]
     Active Substance: ALPRAZOLAM
  6. CLONAZEPAM. [Concomitant]
     Active Substance: CLONAZEPAM
  7. COPAXONE [Concomitant]
     Active Substance: GLATIRAMER ACETATE
  8. AUBAGIO [Suspect]
     Active Substance: TERIFLUNOMIDE
     Indication: MULTIPLE SCLEROSIS
     Route: 048
     Dates: start: 20160108
  9. METOPROLOL. [Concomitant]
     Active Substance: METOPROLOL
  10. PROTONIX [Concomitant]
     Active Substance: PANTOPRAZOLE SODIUM
  11. SENNA [Concomitant]
     Active Substance: SENNA LEAF\SENNOSIDES\SENNOSIDES A AND B
  12. QUETIAPINE. [Concomitant]
     Active Substance: QUETIAPINE
  13. TRAMADOL. [Concomitant]
     Active Substance: TRAMADOL
  14. LISINOPRIL. [Concomitant]
     Active Substance: LISINOPRIL
  15. OXYCODONE/APAP [Concomitant]
     Active Substance: ACETAMINOPHEN\OXYCODONE HYDROCHLORIDE
  16. PANTOPRAZOLE [Concomitant]
     Active Substance: PANTOPRAZOLE SODIUM
  17. TRAZODONE [Concomitant]
     Active Substance: TRAZODONE HYDROCHLORIDE
  18. MAGNESIUM OXIDE. [Concomitant]
     Active Substance: MAGNESIUM OXIDE
  19. RANITIDINE. [Concomitant]
     Active Substance: RANITIDINE
  20. LEVOTHYROXINE. [Concomitant]
     Active Substance: LEVOTHYROXINE
  21. ASA [Concomitant]
     Active Substance: ASPIRIN
  22. AUBAGIO [Suspect]
     Active Substance: TERIFLUNOMIDE
     Indication: MULTIPLE SCLEROSIS
     Route: 048
     Dates: start: 20160108
  23. SEROQUEL [Concomitant]
     Active Substance: QUETIAPINE FUMARATE
  24. XANAX [Concomitant]
     Active Substance: ALPRAZOLAM
  25. DICLOFENAC [Concomitant]
     Active Substance: DICLOFENAC
  26. PROPANOLOL [Concomitant]
     Active Substance: PROPRANOLOL HYDROCHLORIDE
  27. ASPIRIN. [Concomitant]
     Active Substance: ASPIRIN
  28. LIPITOR [Concomitant]
     Active Substance: ATORVASTATIN CALCIUM
  29. ATORVASTATIN [Concomitant]
     Active Substance: ATORVASTATIN
  30. DICYCLOMINE [Concomitant]
     Active Substance: DICYCLOMINE HYDROCHLORIDE

REACTIONS (2)
  - Fatigue [Unknown]
  - Alopecia [Unknown]

NARRATIVE: CASE EVENT DATE: 2016
